FAERS Safety Report 20607311 (Version 1)
Quarter: 2022Q1

REPORT INFORMATION
  Report Type: Spontaneous
  Country: AU (occurrence: AU)
  Receive Date: 20220317
  Receipt Date: 20220317
  Transmission Date: 20220423
  Serious: Yes (Other)
  Sender: FDA-Public Use
  Company Number: AU-ABBVIE-22K-008-4317552-00

PATIENT
  Sex: Male

DRUGS (13)
  1. VENETOCLAX [Suspect]
     Active Substance: VENETOCLAX
     Indication: Chronic lymphocytic leukaemia recurrent
     Route: 048
     Dates: start: 20210201, end: 20211231
  2. RITUXIMAB [Suspect]
     Active Substance: RITUXIMAB
     Indication: Chronic lymphocytic leukaemia recurrent
     Route: 048
     Dates: start: 20210201, end: 20211231
  3. METHYLPREDNISOLONE [Concomitant]
     Active Substance: METHYLPREDNISOLONE
     Indication: Richter^s syndrome
     Dosage: HIGH DOSE
     Dates: start: 20220218, end: 20220221
  4. RITUXIMAB [Concomitant]
     Active Substance: RITUXIMAB
     Indication: Richter^s syndrome
     Dates: start: 20220115, end: 20220120
  5. RITUXIMAB [Concomitant]
     Active Substance: RITUXIMAB
     Indication: Richter^s syndrome
     Dates: start: 20220224, end: 20220309
  6. ETOPOSIDE PHOSPHATE [Concomitant]
     Active Substance: ETOPOSIDE PHOSPHATE
     Indication: Richter^s syndrome
     Dates: start: 20220115, end: 20220120
  7. PREDNISONE [Concomitant]
     Active Substance: PREDNISONE
     Indication: Richter^s syndrome
     Dates: start: 20220115, end: 20220120
  8. VINCRISTINE SULFATE [Concomitant]
     Active Substance: VINCRISTINE SULFATE
     Indication: Richter^s syndrome
     Dates: start: 20220115, end: 20220120
  9. CYCLOPHOSPHAMIDE [Concomitant]
     Active Substance: CYCLOPHOSPHAMIDE
     Indication: Richter^s syndrome
     Dates: start: 20220115, end: 20220120
  10. DOXORUBICIN HYDROCHLORIDE [Concomitant]
     Active Substance: DOXORUBICIN HYDROCHLORIDE
     Indication: Richter^s syndrome
     Dates: start: 20220115, end: 20220120
  11. ETOPOSIDE [Concomitant]
     Active Substance: ETOPOSIDE
     Indication: Richter^s syndrome
     Dates: start: 20220224, end: 20220309
  12. METHYLPREDNISOLONE SODIUM SUCCINATE [Concomitant]
     Active Substance: METHYLPREDNISOLONE SODIUM SUCCINATE
     Indication: Richter^s syndrome
     Dates: start: 20220224, end: 20220309
  13. CYTARABINE [Concomitant]
     Active Substance: CYTARABINE
     Indication: Richter^s syndrome
     Dosage: HIGH DOSE
     Dates: start: 20220224, end: 20220309

REACTIONS (1)
  - Richter^s syndrome [Unknown]
